FAERS Safety Report 4629382-2 (Version None)
Quarter: 2005Q2

REPORT INFORMATION
  Report Type: 
  Country: None (occurrence: None)
  Receive Date: 20050405
  Receipt Date: 20050303
  Transmission Date: 20051028
  Serious: Yes (Death)
  Sender: FDA-Public Use
  Company Number: 10481

PATIENT
  Age: 5 Year
  Sex: Female

DRUGS (5)
  1. METHOTREXATE [Suspect]
     Indication: BURKITT'S LYMPHOMA
     Dosage: 15 MG PER_CYCLE
     Route: 037
  2. VINCRISTINE [Suspect]
     Indication: BURKITT'S LYMPHOMA
  3. CYCLOPHOSPHAMIDE [Suspect]
     Indication: BURKITT'S LYMPHOMA
  4. HYDROCORTISONE [Suspect]
     Indication: BURKITT'S LYMPHOMA
  5. PREDNISONE [Suspect]
     Indication: BURKITT'S LYMPHOMA

REACTIONS (3)
  - ANAEMIA [None]
  - DRUG TOXICITY [None]
  - METABOLIC DISORDER [None]
